FAERS Safety Report 14822307 (Version 1)
Quarter: 2018Q2

REPORT INFORMATION
  Report Type: Spontaneous
  Country: GB (occurrence: GB)
  Receive Date: 20180427
  Receipt Date: 20180427
  Transmission Date: 20180711
  Serious: Yes (Other)
  Sender: FDA-Public Use
  Company Number: GB-AKRON, INC.-2046754

PATIENT
  Age: 79 Year
  Sex: Female
  Weight: 75 kg

DRUGS (1)
  1. ZIOPTAN [Suspect]
     Active Substance: TAFLUPROST
     Route: 047

REACTIONS (3)
  - Drug hypersensitivity [Unknown]
  - Hallucination, visual [Recovering/Resolving]
  - Visual field defect [Unknown]

NARRATIVE: CASE EVENT DATE: 20180302
